FAERS Safety Report 6667607-2 (Version None)
Quarter: 2010Q1

REPORT INFORMATION
  Report Type: 
  Country: None (occurrence: None)
  Receive Date: 20100331
  Receipt Date: 20100317
  Transmission Date: 20100710
  Serious: Yes (Hospitalization, Other)
  Sender: FDA-Public Use
  Company Number: POMP-1000322

PATIENT
  Age: 10 Month
  Sex: Female
  Weight: 13 kg

DRUGS (12)
  1. MYOZYME [Suspect]
     Indication: GLYCOGEN STORAGE DISEASE TYPE II
     Dosage: 300 MG, Q2W, INTRAVENOUS, 150 MG, Q2W, INTRAVENOUS, 200 MG, Q2W, INTRAVENOUS, 250 MG, Q2W, INTRAVENO
     Route: 042
     Dates: start: 20070614, end: 20071227
  2. MYOZYME [Suspect]
     Indication: GLYCOGEN STORAGE DISEASE TYPE II
     Dosage: 300 MG, Q2W, INTRAVENOUS, 150 MG, Q2W, INTRAVENOUS, 200 MG, Q2W, INTRAVENOUS, 250 MG, Q2W, INTRAVENO
     Route: 042
     Dates: start: 20080110, end: 20080320
  3. MYOZYME [Suspect]
     Indication: GLYCOGEN STORAGE DISEASE TYPE II
     Dosage: 300 MG, Q2W, INTRAVENOUS, 150 MG, Q2W, INTRAVENOUS, 200 MG, Q2W, INTRAVENOUS, 250 MG, Q2W, INTRAVENO
     Route: 042
     Dates: start: 20080403, end: 20081030
  4. MYOZYME [Suspect]
     Indication: GLYCOGEN STORAGE DISEASE TYPE II
     Dosage: 300 MG, Q2W, INTRAVENOUS, 150 MG, Q2W, INTRAVENOUS, 200 MG, Q2W, INTRAVENOUS, 250 MG, Q2W, INTRAVENO
     Route: 042
     Dates: start: 20081113
  5. UBIDECARENONE (UBIDECARENONE) [Concomitant]
  6. LEVOCARNITINE HYDROCHLORIDE (LEVOCARNITINE HYDROCHLORIDE) [Concomitant]
  7. ENALAPRIL MALEATE [Concomitant]
  8. CARVEDILOL [Concomitant]
  9. BETAMETHASONE SODIUM PHOSPHATE [Concomitant]
  10. FUROSEMIDE [Concomitant]
  11. CARBOCISTEINE (CARBOCISTEINE) [Concomitant]
  12. AMINOPHYLLIN [Concomitant]

REACTIONS (6)
  - ASPIRATION [None]
  - CONDITION AGGRAVATED [None]
  - CONVULSION [None]
  - DYSPHAGIA [None]
  - RESPIRATORY FAILURE [None]
  - RESPIRATORY SYNCYTIAL VIRUS INFECTION [None]
